FAERS Safety Report 5062622-7 (Version None)
Quarter: 2006Q3

REPORT INFORMATION
  Report Type: 
  Country: None (occurrence: None)
  Receive Date: 20060724
  Receipt Date: 20060724
  Transmission Date: 20061208
  Serious: Yes (Hospitalization)
  Sender: FDA-Public Use
  Company Number: None

PATIENT
  Age: 57 Year
  Sex: Female
  Weight: 83.5526 kg

DRUGS (7)
  1. DOCETAXEL [Suspect]
     Indication: NON-SMALL CELL LUNG CANCER
     Dosage: 70MG, DAYS:1,8,15, IV
     Route: 042
     Dates: start: 20060510, end: 20060628
  2. CAPECITABINE [Suspect]
     Indication: NON-SMALL CELL LUNG CANCER
     Dosage: 1250MG, DAYS: 5-14, PO BID
     Route: 048
     Dates: start: 20060514, end: 20060628
  3. SPIRIVA [Concomitant]
  4. ALBUTEROL SPIROS [Concomitant]
  5. XANAX [Concomitant]
  6. NEXIUM [Concomitant]
  7. FORMOTEROL [Concomitant]

REACTIONS (7)
  - ACUTE RESPIRATORY FAILURE [None]
  - DRUG TOXICITY [None]
  - HYPOTENSION [None]
  - LUNG DISORDER [None]
  - PLEURAL EFFUSION [None]
  - SINUS TACHYCARDIA [None]
  - UNRESPONSIVE TO STIMULI [None]
